FAERS Safety Report 15569911 (Version 1)
Quarter: 2018Q4

REPORT INFORMATION
  Report Type: Spontaneous
  Country: DE (occurrence: DE)
  Receive Date: 20181031
  Receipt Date: 20181031
  Transmission Date: 20190205
  Serious: Yes (Other)
  Sender: FDA-Public Use
  Company Number: DE-BAYER-2018-196183

PATIENT
  Sex: Female

DRUGS (1)
  1. ASPIRIN 500 MG [Suspect]
     Active Substance: ASPIRIN
     Route: 048

REACTIONS (3)
  - Wrong technique in product usage process [None]
  - Choking [None]
  - Intentional product misuse [None]
